FAERS Safety Report 8058457 (Version 4)
Quarter: 2012Q4

REPORT INFORMATION
  Report Type: Report from Study
  Country: US (occurrence: None)
  Receive Date: 20110721
  Receipt Date: 20121121
  Transmission Date: 20130627
  Serious: Yes (Death, Hospitalization)
  Sender: FDA-Public Use
  Company Number: 2011PROUSA00311

PATIENT
  Age: 74 Year
  Weight: 100.7 kg

DRUGS (20)
  1. PROVENGE [Suspect]
     Indication: PROSTATE CANCER METASTATIC
     Dosage: 250 ML, SINGLE, INTRAVENOUS
     Route: 042
     Dates: start: 20110331, end: 20110331
  2. MEGACE [Concomitant]
  3. POTASSIUM CHLORIDE [Concomitant]
  4. ASPIRIN [Concomitant]
  5. BELLADONNA [Concomitant]
  6. OPIUM /00036301/ (MORPHINE) [Concomitant]
  7. DEXAMETHASONE [Concomitant]
  8. DEXTROSE [Concomitant]
  9. FAT EMULSIONS (FATS NOS) [Concomitant]
  10. GLUCAGON [Concomitant]
  11. INSULIN ASPART (INSULIN ASPART) [Concomitant]
  12. INSULIN DETEMIR (INSULIN DETEMIR) [Concomitant]
  13. MORPHINE [Concomitant]
  14. ONDANSETRON [Concomitant]
  15. OXYCODONE HYDROCHLORIDE [Concomitant]
  16. POLYETHYLENE GLYCOLS [Concomitant]
  17. SOLIFENACIN SUCCINATE [Concomitant]
  18. TPN /06443901/ (AMINO ACIDS NOS, CARBOHYDRATES NOS, MINERALS NOS, VITAMINS NOS) [Concomitant]
  19. CALCIUM CARBONATE (CALCIUM CARBONATE) [Concomitant]
  20. CHOLECALCIFEROL (CHOLECALCIFEROL) [Concomitant]

REACTIONS (6)
  - Malnutrition [None]
  - Hypokalaemia [None]
  - Urinary tract infection [None]
  - Haemolysis [None]
  - Neoplasm progression [None]
  - Prostate cancer [None]
